FAERS Safety Report 5682963-X (Version None)
Quarter: 2008Q1

REPORT INFORMATION
  Report Type: 
  Country: None (occurrence: None)
  Receive Date: 20080327
  Receipt Date: 20080314
  Transmission Date: 20080703
  Serious: Yes (Hospitalization)
  Sender: FDA-Public Use
  Company Number: FR-MERCK-0803FRA00028

PATIENT
  Age: 74 Year
  Sex: Male

DRUGS (2)
  1. INVANZ [Suspect]
     Indication: INFECTION
     Route: 042
     Dates: start: 20080222, end: 20080229
  2. FLUCONAZOLE [Suspect]
     Indication: FUNGAL INFECTION
     Route: 065
     Dates: start: 20080215, end: 20080229

REACTIONS (1)
  - AGRANULOCYTOSIS [None]
